FAERS Safety Report 5899330-6 (Version None)
Quarter: 2008Q3

REPORT INFORMATION
  Report Type: 
  Country: None (occurrence: None)
  Receive Date: 20080924
  Receipt Date: 20080912
  Transmission Date: 20090109
  Serious: Yes (Death)
  Sender: FDA-Public Use
  Company Number: CHPA2008US15603

PATIENT
  Age: 3 Month
  Sex: Female

DRUGS (3)
  1. DEXTROMETHORPHAN HYDROBROMIDE [Suspect]
  2. DIPHENHYDRAMINE HCL [Suspect]
  3. ATROPINE [Suspect]

REACTIONS (1)
  - DRUG TOXICITY [None]
